FAERS Safety Report 6354191-6 (Version None)
Quarter: 2009Q3

REPORT INFORMATION
  Report Type: 
  Country: None (occurrence: None)
  Receive Date: 20090914
  Receipt Date: 20090902
  Transmission Date: 20100115
  Serious: Yes (Hospitalization, Other)
  Sender: FDA-Public Use
  Company Number: IT-JNJFOC-20090902822

PATIENT
  Sex: Male

DRUGS (1)
  1. REOPRO [Suspect]
     Indication: ANGINA PECTORIS
     Route: 042

REACTIONS (2)
  - MYOCARDIAL INFARCTION [None]
  - THROMBOCYTOPENIA [None]
